FAERS Safety Report 23711785 (Version 1)
Quarter: 2024Q2

REPORT INFORMATION
  Report Type: Spontaneous
  Country: US (occurrence: None)
  Receive Date: 20240404
  Receipt Date: 20240404
  Transmission Date: 20240715
  Serious: No
  Sender: FDA-Public Use
  Company Number: None

PATIENT
  Age: 80 Year
  Sex: Female
  Weight: 84.6 kg

DRUGS (12)
  1. FAMCICLOVIR [Suspect]
     Active Substance: FAMCICLOVIR
     Indication: Herpes zoster
     Dosage: 1  CAPSULE DAILY ORAL
     Route: 048
     Dates: start: 20240401, end: 20240404
  2. DEVICE [Concomitant]
     Active Substance: DEVICE
  3. REPATHA [Concomitant]
     Active Substance: EVOLOCUMAB
  4. METOPROLOL [Concomitant]
  5. ALLOPURINOL [Concomitant]
  6. GABAPENTIN [Concomitant]
  7. HYDROCHLOROTHIAZIDE [Concomitant]
     Active Substance: HYDROCHLOROTHIAZIDE
  8. PANTOPRAZOLE [Concomitant]
  9. POTASSIUM [Concomitant]
  10. ASPIRIN [Concomitant]
     Active Substance: ASPIRIN
  11. IBUPROFEN [Concomitant]
  12. TYLENOL [Concomitant]

REACTIONS (1)
  - Headache [None]

NARRATIVE: CASE EVENT DATE: 20240401
